FAERS Safety Report 15810792 (Version 11)
Quarter: 2020Q3

REPORT INFORMATION
  Report Type: Report from Study
  Country: DE (occurrence: DE)
  Receive Date: 20190111
  Receipt Date: 20200921
  Transmission Date: 20201102
  Serious: Yes (Hospitalization)
  Sender: FDA-Public Use
  Company Number: DE-BIOGEN-2018BI00662150

PATIENT
  Age: 45 Year
  Sex: Female

DRUGS (4)
  1. TRIMIPRAMINE [Suspect]
     Active Substance: TRIMIPRAMINE
     Indication: ANXIETY
     Route: 065
     Dates: start: 201905, end: 2019
  2. AVONEX [Suspect]
     Active Substance: INTERFERON BETA-1A
     Indication: MULTIPLE SCLEROSIS
     Route: 050
     Dates: start: 20090101
  3. AVONEX [Suspect]
     Active Substance: INTERFERON BETA-1A
     Route: 030
     Dates: start: 20091001
  4. AVONEX PEN [Suspect]
     Active Substance: INTERFERON BETA-1A
     Indication: MULTIPLE SCLEROSIS
     Route: 030
     Dates: start: 20091001

REACTIONS (5)
  - Anxiety [Recovered/Resolved]
  - Fear [Not Recovered/Not Resolved]
  - Alopecia [Recovered/Resolved]
  - Malaise [Not Recovered/Not Resolved]
  - Procedural anxiety [Recovered/Resolved]

NARRATIVE: CASE EVENT DATE: 2018
